FAERS Safety Report 7444729-X (Version None)
Quarter: 2011Q2

REPORT INFORMATION
  Report Type: 
  Country: None (occurrence: None)
  Receive Date: 20110429
  Receipt Date: 20100617
  Transmission Date: 20111010
  Serious: No
  Sender: FDA-Public Use
  Company Number: US-PFIZER INC-US-WYE-H16010410

PATIENT
  Age: 47 Year
  Sex: Female

DRUGS (1)
  1. ADVIL ALLERGY SINUS [Suspect]
     Indication: HYPERSENSITIVITY
     Dosage: 1 CAPLET FOUR TIMES
     Route: 048
     Dates: start: 20100617, end: 20100617

REACTIONS (3)
  - CONDITION AGGRAVATED [None]
  - HYPERSENSITIVITY [None]
  - DRUG INEFFECTIVE [None]
